FAERS Safety Report 16325016 (Version 1)
Quarter: 2019Q2

REPORT INFORMATION
  Report Type: Spontaneous
  Country: US (occurrence: US)
  Receive Date: 20190517
  Receipt Date: 20190517
  Transmission Date: 20190711
  Serious: Yes (Hospitalization)
  Sender: FDA-Public Use
  Company Number: US-PFIZER INC-2019155374

PATIENT
  Age: 88 Year
  Sex: Female
  Weight: 58.97 kg

DRUGS (5)
  1. SYNTHROID [Concomitant]
     Active Substance: LEVOTHYROXINE SODIUM
     Indication: THYROID DISORDER
     Dosage: 50 UG, 1X/DAY (IN THE MORNING)
     Route: 048
  2. ROBITUSSIN COUGH AND CHEST CONGESTION SUGAR FREE DM [Suspect]
     Active Substance: DEXTROMETHORPHAN HYDROBROMIDE\GUAIFENESIN
     Indication: NASOPHARYNGITIS
     Dosage: UNK, FOUR TIMES A DAY (5 OR 6 HOURS APART/  IT SAYS TO TAKE IT TO THE LINE IN THE CUP AND CLOSE
     Dates: start: 201812
  3. ROBITUSSIN COUGH AND CHEST CONGESTION SUGAR FREE DM [Suspect]
     Active Substance: DEXTROMETHORPHAN HYDROBROMIDE\GUAIFENESIN
     Indication: VIRAL INFECTION
  4. ROBITUSSIN COUGH AND CHEST CONGESTION SUGAR FREE DM [Suspect]
     Active Substance: DEXTROMETHORPHAN HYDROBROMIDE\GUAIFENESIN
     Indication: COUGH
     Dosage: UNK, FOUR TIMES A DAY (5 OR 6 HOURS APART/  IT SAYS TO TAKE IT TO THE LINE IN THE CUP AND CLOSE
     Dates: start: 201812
  5. PREMPRO [Concomitant]
     Active Substance: ESTROGENS, CONJUGATED\MEDROXYPROGESTERONE ACETATE
     Indication: HORMONE THERAPY
     Dosage: 0.3 MG/ 1.5MG, ONCE IN THE MORNING
     Route: 048

REACTIONS (6)
  - Increased upper airway secretion [Recovered/Resolved]
  - Dysphonia [Recovered/Resolved]
  - Insomnia [Unknown]
  - Productive cough [Unknown]
  - Drug ineffective [Unknown]
  - Product use issue [Unknown]

NARRATIVE: CASE EVENT DATE: 201812
